FAERS Safety Report 6320479-8 (Version None)
Quarter: 2009Q3

REPORT INFORMATION
  Report Type: 
  Country: None (occurrence: None)
  Receive Date: 20090822
  Receipt Date: 20081110
  Transmission Date: 20100115
  Serious: No
  Sender: FDA-Public Use
  Company Number: US-ABBOTT-08P-163-0487194-00

PATIENT
  Sex: Male

DRUGS (2)
  1. NIASPAN [Suspect]
     Indication: DRUG USE FOR UNKNOWN INDICATION
     Dosage: 500MILLIGRAMS - 2000 MILLIGRAMS
     Dates: start: 20060101
  2. NIASPAN [Suspect]
     Dates: start: 20081001

REACTIONS (1)
  - ABDOMINAL DISCOMFORT [None]
